FAERS Safety Report 21387113 (Version 3)
Quarter: 2022Q4

REPORT INFORMATION
  Report Type: Report from Study
  Country: US (occurrence: US)
  Receive Date: 20220928
  Receipt Date: 20221220
  Transmission Date: 20230113
  Serious: Yes (Other)
  Sender: FDA-Public Use
  Company Number: US-TAKEDA-2022TUS068524

PATIENT
  Sex: Female

DRUGS (12)
  1. TEDUGLUTIDE [Suspect]
     Active Substance: TEDUGLUTIDE
     Indication: Malabsorption
     Dosage: 2.3 MILLIGRAM, QD
     Route: 058
     Dates: start: 202208
  2. TEDUGLUTIDE [Suspect]
     Active Substance: TEDUGLUTIDE
     Indication: Malabsorption
     Dosage: 2.3 MILLIGRAM, QD
     Route: 058
     Dates: start: 202208
  3. TEDUGLUTIDE [Suspect]
     Active Substance: TEDUGLUTIDE
     Indication: Malabsorption
     Dosage: 2.3 MILLIGRAM, QD
     Route: 058
     Dates: start: 202208
  4. TEDUGLUTIDE [Suspect]
     Active Substance: TEDUGLUTIDE
     Indication: Malabsorption
     Dosage: 2.3 MILLIGRAM, QD
     Route: 058
     Dates: start: 202208
  5. TEDUGLUTIDE [Suspect]
     Active Substance: TEDUGLUTIDE
     Indication: Malnutrition
     Dosage: 2.3 MILLIGRAM, QD
     Route: 058
     Dates: start: 20220810
  6. TEDUGLUTIDE [Suspect]
     Active Substance: TEDUGLUTIDE
     Indication: Malnutrition
     Dosage: 2.3 MILLIGRAM, QD
     Route: 058
     Dates: start: 20220810
  7. TEDUGLUTIDE [Suspect]
     Active Substance: TEDUGLUTIDE
     Indication: Malnutrition
     Dosage: 2.3 MILLIGRAM, QD
     Route: 058
     Dates: start: 20220810
  8. TEDUGLUTIDE [Suspect]
     Active Substance: TEDUGLUTIDE
     Indication: Malnutrition
     Dosage: 2.3 MILLIGRAM, QD
     Route: 058
     Dates: start: 20220810
  9. TEDUGLUTIDE [Suspect]
     Active Substance: TEDUGLUTIDE
     Indication: Idiopathic urticaria
  10. TEDUGLUTIDE [Suspect]
     Active Substance: TEDUGLUTIDE
     Indication: Idiopathic urticaria
  11. TEDUGLUTIDE [Suspect]
     Active Substance: TEDUGLUTIDE
     Indication: Idiopathic urticaria
  12. TEDUGLUTIDE [Suspect]
     Active Substance: TEDUGLUTIDE
     Indication: Idiopathic urticaria

REACTIONS (9)
  - Loss of consciousness [Unknown]
  - Abdominal distension [Unknown]
  - Abdominal pain upper [Unknown]
  - Abdominal pain [Unknown]
  - Insomnia [Unknown]
  - Discomfort [Unknown]
  - Faeces discoloured [Unknown]
  - Nervous system disorder [Unknown]
  - Bowel movement irregularity [Unknown]
